FAERS Safety Report 7775470-1 (Version None)
Quarter: 2011Q3

REPORT INFORMATION
  Report Type: 
  Country: None (occurrence: None)
  Receive Date: 20110923
  Receipt Date: 20110922
  Transmission Date: 20111222
  Serious: Yes (Hospitalization)
  Sender: FDA-Public Use
  Company Number: JP-ABBOTT-11P-087-0722297-00

PATIENT
  Sex: Male
  Weight: 63 kg

DRUGS (8)
  1. HUMIRA [Suspect]
     Dates: start: 20110318
  2. FEXOFENADINE HYDROCHLORIDE [Concomitant]
     Indication: RHINITIS ALLERGIC
     Dates: start: 20110218
  3. HUMIRA [Suspect]
     Dates: start: 20110304, end: 20110304
  4. ALFACALCIDOL [Concomitant]
     Indication: OSTEOPOROSIS
     Dates: start: 20040813
  5. MESALAMINE [Concomitant]
     Indication: CROHN'S DISEASE
     Route: 048
     Dates: start: 20000321
  6. CHINESE HERBAL MEDICINE (DAIKENCHUTO) [Concomitant]
     Indication: CROHN'S DISEASE
     Route: 048
     Dates: start: 20090313, end: 20110416
  7. HUMIRA [Suspect]
     Indication: CROHN'S DISEASE
     Route: 058
     Dates: start: 20110218, end: 20110218
  8. REBAMIPIDE [Concomitant]
     Indication: GASTRITIS
     Route: 048
     Dates: start: 20000321

REACTIONS (1)
  - SUBILEUS [None]
